FAERS Safety Report 19627686 (Version 1)
Quarter: 2021Q3

REPORT INFORMATION
  Report Type: Spontaneous
  Country: NO (occurrence: NO)
  Receive Date: 20210728
  Receipt Date: 20210728
  Transmission Date: 20211014
  Serious: Yes (Hospitalization, Other)
  Sender: FDA-Public Use
  Company Number: NO-TEVA-2021-NO-1935062

PATIENT
  Sex: Male

DRUGS (3)
  1. TARGINIQ ER [Concomitant]
     Active Substance: NALOXONE HYDROCHLORIDE\OXYCODONE HYDROCHLORIDE
     Route: 065
  2. OXYNORM [Concomitant]
     Active Substance: OXYCODONE HYDROCHLORIDE
     Route: 065
  3. TRAMADOL ACTAVIS [Suspect]
     Active Substance: TRAMADOL
     Dosage: 800 MILLIGRAM DAILY;
     Route: 065
     Dates: start: 2017

REACTIONS (5)
  - Hospitalisation [Unknown]
  - Overdose [Unknown]
  - Drug ineffective [Unknown]
  - Drug dependence [Unknown]
  - Suicide attempt [Unknown]
